FAERS Safety Report 4311821-8 (Version None)
Quarter: 2004Q1

REPORT INFORMATION
  Report Type: 
  Country: None (occurrence: None)
  Receive Date: 20040304
  Receipt Date: 20040120
  Transmission Date: 20041129
  Serious: Yes (Other)
  Sender: FDA-Public Use
  Company Number: WAES 0401USA01456

PATIENT
  Age: 74 Year
  Sex: Male
  Weight: 79 kg

DRUGS (4)
  1. ASPIRIN [Concomitant]
  2. LISINOPRIL [Concomitant]
     Route: 048
  3. TOPROL-XL [Concomitant]
  4. ZOCOR [Suspect]
     Indication: HYPERCHOLESTEROLAEMIA
     Route: 048
     Dates: start: 19950101, end: 20030101

REACTIONS (2)
  - CORONARY ARTERY DISEASE [None]
  - MYALGIA [None]
